FAERS Safety Report 10081523 (Version 2)
Quarter: 2014Q2

REPORT INFORMATION
  Report Type: Spontaneous
  Country: US (occurrence: US)
  Receive Date: 20140416
  Receipt Date: 20140429
  Transmission Date: 20141212
  Serious: Yes (Life-Threatening, Other)
  Sender: FDA-Public Use
  Company Number: US-009507513-1404USA006282

PATIENT
  Sex: Male

DRUGS (2)
  1. SYLATRON [Suspect]
     Indication: NEOPLASM MALIGNANT
     Dosage: 6 MICROGRAM PER KILOGRAM, FOR 8 WEEKS
  2. SYLATRON [Suspect]
     Dosage: 3 MICROGRAM PER KILOGRAM, UNK

REACTIONS (2)
  - Metastatic malignant melanoma [Not Recovered/Not Resolved]
  - Treatment failure [Not Recovered/Not Resolved]
